FAERS Safety Report 15323162 (Version 2)
Quarter: 2018Q3

REPORT INFORMATION
  Report Type: Spontaneous
  Country: BE (occurrence: BE)
  Receive Date: 20180827
  Receipt Date: 20180830
  Transmission Date: 20181010
  Serious: Yes (Hospitalization, Other)
  Sender: FDA-Public Use
  Company Number: BE-TAKEDA-2017TUS018369

PATIENT
  Age: 32 Year
  Sex: Male
  Weight: 57 kg

DRUGS (2)
  1. ENTYVIO [Suspect]
     Active Substance: VEDOLIZUMAB
     Dosage: UNK, Q4WEEKS
     Route: 042
     Dates: start: 20170923, end: 20180209
  2. ENTYVIO [Suspect]
     Active Substance: VEDOLIZUMAB
     Indication: CROHN^S DISEASE
     Dosage: 300 MG, UNK
     Route: 042
     Dates: start: 20151106

REACTIONS (4)
  - Gastrointestinal anastomotic leak [Unknown]
  - Crohn^s disease [Unknown]
  - Fistula [Unknown]
  - Therapeutic reaction time decreased [Unknown]
